FAERS Safety Report 20048060 (Version 1)
Quarter: 2021Q4

REPORT INFORMATION
  Report Type: Spontaneous
  Country: ID (occurrence: ID)
  Receive Date: 20211109
  Receipt Date: 20211109
  Transmission Date: 20220304
  Serious: Yes (Other)
  Sender: FDA-Public Use
  Company Number: ID-LUPIN PHARMACEUTICALS INC.-2021-21713

PATIENT
  Age: 47 Year
  Sex: Female

DRUGS (14)
  1. MOXIFLOXACIN [Suspect]
     Active Substance: MOXIFLOXACIN
     Indication: Pulmonary tuberculosis
     Dosage: 600 MILLIGRAM, SHORT-TERM MDR-TB THERAPY
     Route: 065
  2. MOXIFLOXACIN [Suspect]
     Active Substance: MOXIFLOXACIN
     Dosage: 400 MILLIGRAM (RE-INITIATED)
     Route: 065
  3. MOXIFLOXACIN [Suspect]
     Active Substance: MOXIFLOXACIN
     Dosage: 600 MILLIGRAM (INCREASED AND TEMPORARILY DISCONTINUED)
     Route: 065
  4. MOXIFLOXACIN [Suspect]
     Active Substance: MOXIFLOXACIN
     Dosage: 200 MILLIGRAM
     Route: 065
  5. MOXIFLOXACIN [Suspect]
     Active Substance: MOXIFLOXACIN
     Dosage: 400 MILLIGRAM (CONTINUED TILL COMPLETION OF THERAPY)
     Route: 065
  6. RIFAMPIN [Suspect]
     Active Substance: RIFAMPIN
     Indication: Pulmonary tuberculosis
     Dosage: UNK, CATEGORY 1
     Route: 048
  7. CLOFAZIMINE [Suspect]
     Active Substance: CLOFAZIMINE
     Indication: Pulmonary tuberculosis
     Dosage: 100 MILLIGRAM, QD, SHORT-TERM MDR-TB THERAPY
     Route: 065
  8. CLOFAZIMINE [Suspect]
     Active Substance: CLOFAZIMINE
     Dosage: 50 MILLIGRAM, QD (DOSE DECREASED)
     Route: 065
  9. CLOFAZIMINE [Suspect]
     Active Substance: CLOFAZIMINE
     Dosage: 100 MILLIGRAM, QD (DOSE INCREASED)
     Route: 065
  10. Kanamicina [Concomitant]
     Indication: Pulmonary tuberculosis
     Dosage: 750 MILLIGRAM, SHORT-TERM MDR-TB THERAPY
     Route: 065
  11. ETHIONAMIDE [Concomitant]
     Active Substance: ETHIONAMIDE
     Indication: Pulmonary tuberculosis
     Dosage: 500 MILLIGRAM, SHORT-TERM MDR-TB THERAPY
     Route: 065
  12. ISONIAZID [Concomitant]
     Active Substance: ISONIAZID
     Indication: Pulmonary tuberculosis
     Dosage: 600 MILLIGRAM, SHORT-TERM MDR-TB THERAPY
     Route: 065
  13. PYRAZINAMIDE [Concomitant]
     Active Substance: PYRAZINAMIDE
     Indication: Pulmonary tuberculosis
     Dosage: 1500 MILLIGRAM, SHORT-TERM MDR-TB THERAPY
     Route: 065
  14. ETHAMBUTOL [Concomitant]
     Active Substance: ETHAMBUTOL HYDROCHLORIDE
     Indication: Pulmonary tuberculosis
     Dosage: 800 MILLIGRAM, SHORT-TERM MDR-TB THERAPY
     Route: 065

REACTIONS (3)
  - Electrocardiogram QT prolonged [Recovered/Resolved]
  - Treatment failure [Unknown]
  - Drug resistance [Unknown]
